FAERS Safety Report 6006925-8 (Version None)
Quarter: 2008Q4

REPORT INFORMATION
  Report Type: 
  Country: None (occurrence: None)
  Receive Date: 20081217
  Receipt Date: 20081211
  Transmission Date: 20090506
  Serious: Yes (Death)
  Sender: FDA-Public Use
  Company Number: CR-WYE-H07165808

PATIENT
  Age: 63 Year
  Sex: Female

DRUGS (2)
  1. PANTECTA [Suspect]
     Indication: GASTRODUODENAL ULCER
     Dosage: UNKNOWN
     Route: 048
  2. PANTECTA [Suspect]
     Indication: VOMITING

REACTIONS (1)
  - METASTASIS [None]
